FAERS Safety Report 12317998 (Version 2)
Quarter: 2016Q2

REPORT INFORMATION
  Report Type: Spontaneous
  Country: BE (occurrence: BE)
  Receive Date: 20160429
  Receipt Date: 20160523
  Transmission Date: 20160815
  Serious: Yes (Death)
  Sender: FDA-Public Use
  Company Number: BE-AMGEN-BELSP2016054307

PATIENT
  Age: 66 Year
  Sex: Female

DRUGS (2)
  1. ENBREL [Suspect]
     Active Substance: ETANERCEPT
     Indication: PSORIASIS
     Dosage: UNK
     Route: 058
     Dates: start: 2007
  2. ENBREL [Suspect]
     Active Substance: ETANERCEPT
     Dosage: 50 MG, 2X/WEEK
     Route: 058
     Dates: start: 20080103

REACTIONS (1)
  - Death [Fatal]

NARRATIVE: CASE EVENT DATE: 201603
